FAERS Safety Report 8010247 (Version 9)
Quarter: 2014Q1

REPORT INFORMATION
  Report Type: Spontaneous
  Country: JP (occurrence: JP)
  Receive Date: 20110627
  Receipt Date: 20140312
  Transmission Date: 20141002
  Serious: Yes (Death, Hospitalization, Other)
  Sender: FDA-Public Use
  Company Number: PHHY2011JP55749

PATIENT
  Age: 68 Year
  Sex: Female
  Weight: 50 kg

DRUGS (6)
  1. TEGRETOL [Suspect]
     Indication: EPILEPSY
     Dosage: 200 MG, BID
     Route: 048
     Dates: start: 20110105, end: 20110410
  2. SUNRYTHM [Suspect]
     Indication: ATRIAL FIBRILLATION
     Dosage: 100 MG, QD
     Route: 048
     Dates: start: 20050201, end: 20110321
  3. CEFAMEZIN [Suspect]
     Indication: INFECTION PROPHYLAXIS
     Dosage: 1 G, UNK
     Route: 042
     Dates: start: 20110401, end: 20110404
  4. UNASYN [Suspect]
     Indication: INFECTION PROPHYLAXIS
     Dosage: 0.063 G, QD
     Route: 041
     Dates: start: 20110406, end: 20110408
  5. FLOMOX [Suspect]
     Indication: INFECTION PROPHYLAXIS
     Dosage: 200 MG, UNK
     Route: 048
     Dates: start: 20110426, end: 20110429
  6. LACTEC [Concomitant]
     Route: 042

REACTIONS (37)
  - Multi-organ failure [Fatal]
  - Renal failure [Fatal]
  - Sepsis [Fatal]
  - Hepatomegaly [Fatal]
  - Splenomegaly [Fatal]
  - Shock [Fatal]
  - Fibrin D dimer increased [Fatal]
  - Pulmonary fibrosis [Fatal]
  - Post procedural sepsis [Fatal]
  - Disseminated intravascular coagulation [Fatal]
  - Femur fracture [Recovered/Resolved]
  - Bradycardia [Recovered/Resolved]
  - Heart rate decreased [Recovered/Resolved]
  - Pseudomembranous colitis [Recovering/Resolving]
  - Clostridium test positive [Unknown]
  - Fall [Unknown]
  - Bacteraemia [Unknown]
  - Cell-mediated cytotoxicity [Unknown]
  - CD8 lymphocytes increased [Unknown]
  - Soft tissue disorder [Unknown]
  - Macrophages increased [Unknown]
  - Renal disorder [Unknown]
  - Renal impairment [Unknown]
  - Kidney enlargement [Unknown]
  - Haematocrit decreased [Unknown]
  - Lymphocyte count decreased [Unknown]
  - Tubulointerstitial nephritis [Not Recovered/Not Resolved]
  - Blood urea increased [Unknown]
  - Blood creatinine increased [Unknown]
  - Eosinophil count increased [Unknown]
  - Monocyte count increased [Unknown]
  - Haemoglobin decreased [Unknown]
  - Red blood cell count decreased [Unknown]
  - White blood cell count decreased [Unknown]
  - Blood pressure decreased [Unknown]
  - Depressed level of consciousness [Unknown]
  - Gamma-glutamyltransferase increased [Unknown]
